FAERS Safety Report 25656896 (Version 1)
Quarter: 2025Q3

REPORT INFORMATION
  Report Type: Spontaneous
  Country: CN (occurrence: CN)
  Receive Date: 20250807
  Receipt Date: 20250807
  Transmission Date: 20251020
  Serious: Yes (Other)
  Sender: BEIGENE
  Company Number: CN-BEIGENE-BGN-2025-012795

PATIENT
  Age: 72 Year

DRUGS (18)
  1. TISLELIZUMAB [Suspect]
     Active Substance: TISLELIZUMAB
     Indication: Gastric cancer stage IV
  2. TISLELIZUMAB [Suspect]
     Active Substance: TISLELIZUMAB
  3. OXALIPLATIN [Concomitant]
     Active Substance: OXALIPLATIN
     Indication: Gastric cancer stage IV
  4. OXALIPLATIN [Concomitant]
     Active Substance: OXALIPLATIN
  5. OXALIPLATIN [Concomitant]
     Active Substance: OXALIPLATIN
  6. OXALIPLATIN [Concomitant]
     Active Substance: OXALIPLATIN
  7. MANNITOL [Concomitant]
     Active Substance: MANNITOL
     Indication: Gastric cancer stage IV
  8. MANNITOL [Concomitant]
     Active Substance: MANNITOL
  9. MANNITOL [Concomitant]
     Active Substance: MANNITOL
  10. MANNITOL [Concomitant]
     Active Substance: MANNITOL
  11. LEUCOVORIN CALCIUM [Concomitant]
     Active Substance: LEUCOVORIN CALCIUM
     Indication: Gastric cancer stage IV
  12. LEUCOVORIN CALCIUM [Concomitant]
     Active Substance: LEUCOVORIN CALCIUM
  13. LEUCOVORIN CALCIUM [Concomitant]
     Active Substance: LEUCOVORIN CALCIUM
  14. LEUCOVORIN CALCIUM [Concomitant]
     Active Substance: LEUCOVORIN CALCIUM
  15. FLUOROURACIL [Concomitant]
     Active Substance: FLUOROURACIL
     Indication: Gastric cancer stage IV
  16. FLUOROURACIL [Concomitant]
     Active Substance: FLUOROURACIL
  17. FLUOROURACIL [Concomitant]
     Active Substance: FLUOROURACIL
  18. FLUOROURACIL [Concomitant]
     Active Substance: FLUOROURACIL

REACTIONS (1)
  - Disease progression [Unknown]
